FAERS Safety Report 9349707 (Version 1)
Quarter: 2013Q2

REPORT INFORMATION
  Report Type: Spontaneous
  Country: US (occurrence: US)
  Receive Date: 20130614
  Receipt Date: 20130614
  Transmission Date: 20140414
  Serious: No
  Sender: FDA-Public Use
  Company Number: US-009507513-1306USA005839

PATIENT
  Age: 45 Year
  Sex: Female

DRUGS (3)
  1. NASONEX [Suspect]
     Indication: SEASONAL ALLERGY
     Dosage: 2 SPRAYS IN EACH NOSTRIL, QD
     Route: 045
     Dates: start: 2009
  2. NASONEX [Suspect]
     Indication: NASAL POLYPS
  3. SINGULAIR [Concomitant]

REACTIONS (3)
  - Nasal congestion [Not Recovered/Not Resolved]
  - Product quality issue [Unknown]
  - Drug dose omission [Unknown]
